FAERS Safety Report 19572797 (Version 2)
Quarter: 2021Q3

REPORT INFORMATION
  Report Type: Report from Study
  Country: CO (occurrence: CO)
  Receive Date: 20210716
  Receipt Date: 20210727
  Transmission Date: 20211014
  Serious: Yes (Other)
  Sender: FDA-Public Use
  Company Number: CO-TAKEDA-2021TUS044325

PATIENT
  Age: 10 Year
  Sex: Male
  Weight: 24 kg

DRUGS (6)
  1. ADVATE [Suspect]
     Active Substance: ANTIHEMOPHILIC FACTOR, HUMAN RECOMBINANT
     Dosage: 750 INTERNATIONAL UNIT, Q3WEEKS
     Route: 042
     Dates: start: 20180924
  2. ADVATE [Suspect]
     Active Substance: ANTIHEMOPHILIC FACTOR, HUMAN RECOMBINANT
     Indication: FACTOR VIII DEFICIENCY
     Dosage: 750 INTERNATIONAL UNIT, 3/WEEK
     Route: 042
     Dates: start: 20180924
  3. ADVATE [Suspect]
     Active Substance: ANTIHEMOPHILIC FACTOR, HUMAN RECOMBINANT
     Dosage: 750 INTERNATIONAL UNIT, Q3WEEKS
     Route: 042
     Dates: start: 20180924
  4. ADVATE [Suspect]
     Active Substance: ANTIHEMOPHILIC FACTOR, HUMAN RECOMBINANT
     Indication: FACTOR VIII DEFICIENCY
     Dosage: 750 INTERNATIONAL UNIT, 3/WEEK
     Route: 042
     Dates: start: 20180924
  5. ADVATE [Suspect]
     Active Substance: ANTIHEMOPHILIC FACTOR, HUMAN RECOMBINANT
     Indication: FACTOR VIII DEFICIENCY
     Dosage: 750 INTERNATIONAL UNIT, 3/WEEK
     Route: 042
     Dates: start: 20180924
  6. ADVATE [Suspect]
     Active Substance: ANTIHEMOPHILIC FACTOR, HUMAN RECOMBINANT
     Dosage: 750 INTERNATIONAL UNIT, Q3WEEKS
     Route: 042
     Dates: start: 20180924

REACTIONS (7)
  - Haemarthrosis [Recovered/Resolved]
  - Gingival bleeding [Recovered/Resolved]
  - Movement disorder [Recovered/Resolved]
  - Pain in extremity [Recovered/Resolved]
  - Pain [Recovered/Resolved]
  - Oedema peripheral [Recovered/Resolved]
  - Feeling hot [Recovered/Resolved]

NARRATIVE: CASE EVENT DATE: 20210601
